FAERS Safety Report 5755369-2 (Version None)
Quarter: 2008Q2

REPORT INFORMATION
  Report Type: 
  Country: None (occurrence: None)
  Receive Date: 20080602
  Receipt Date: 20080521
  Transmission Date: 20081010
  Serious: Yes (Hospitalization, Other)
  Sender: FDA-Public Use
  Company Number: DE-ROCHE-566325

PATIENT
  Sex: Female

DRUGS (10)
  1. XENICAL [Suspect]
     Indication: WEIGHT CONTROL
     Route: 048
  2. DOTAREM [Suspect]
     Route: 042
     Dates: start: 20080114, end: 20080114
  3. KINZALKOMB [Concomitant]
  4. KINZALKOMB [Concomitant]
  5. ALLOPURINOL [Concomitant]
     Dosage: DOSAGE REPORTED:1/2-0-0
  6. PANTOPRAZOLE SODIUM [Concomitant]
     Dosage: DRUG:PANTOZOL 40
  7. TRI.-THIAZID [Concomitant]
  8. TRI.-THIAZID [Concomitant]
  9. MCP [Concomitant]
  10. HUMALOG [Concomitant]
     Dosage: DRUG REPORTED: HUMALOG 25, DOSAGE REPORTED:30-12-12 IU

REACTIONS (6)
  - AMAUROSIS FUGAX [None]
  - ASYMPTOMATIC BACTERIURIA [None]
  - DRUG HYPERSENSITIVITY [None]
  - HYPOKALAEMIA [None]
  - RHABDOMYOLYSIS [None]
  - VENTRICULAR TACHYCARDIA [None]
